FAERS Safety Report 9436670 (Version 2)
Quarter: 2013Q4

REPORT INFORMATION
  Report Type: Spontaneous
  Country: GB (occurrence: GB)
  Receive Date: 20130802
  Receipt Date: 20131219
  Transmission Date: 20140711
  Serious: Yes (Hospitalization)
  Sender: FDA-Public Use
  Company Number: GB-009507513-1307GBR016305

PATIENT
  Sex: Female

DRUGS (1)
  1. EZETROL [Suspect]
     Indication: BLOOD CHOLESTEROL INCREASED
     Dosage: 10 MG, QD
     Route: 048

REACTIONS (3)
  - Gallbladder operation [Unknown]
  - Cholelithiasis [Unknown]
  - Cholecystitis [Unknown]
